FAERS Safety Report 11393146 (Version 1)
Quarter: 2015Q3

REPORT INFORMATION
  Report Type: Report from Study
  Country: JP (occurrence: JP)
  Receive Date: 20150818
  Receipt Date: 20150818
  Transmission Date: 20151125
  Serious: Yes (Hospitalization, Disabling)
  Sender: FDA-Public Use
  Company Number: JP-JNJFOC-20150811210

PATIENT
  Age: 86 Year
  Sex: Female
  Weight: 47.5 kg

DRUGS (11)
  1. CADUET [Concomitant]
     Active Substance: AMLODIPINE BESYLATE\ATORVASTATIN CALCIUM
     Route: 048
  2. AVAPRO [Concomitant]
     Active Substance: IRBESARTAN
     Route: 048
  3. MAGLAX [Concomitant]
     Active Substance: MAGNESIUM OXIDE
     Route: 048
  4. XARELTO [Suspect]
     Active Substance: RIVAROXABAN
     Indication: CEREBROVASCULAR ACCIDENT PROPHYLAXIS
     Route: 048
     Dates: start: 20120615, end: 20130807
  5. AIMIX [Concomitant]
     Active Substance: AMLODIPINE BESYLATE\IRBESARTAN
     Route: 048
  6. CRESTOR [Concomitant]
     Active Substance: ROSUVASTATIN CALCIUM
     Route: 048
  7. XARELTO [Suspect]
     Active Substance: RIVAROXABAN
     Indication: CEREBROVASCULAR ACCIDENT PROPHYLAXIS
     Route: 048
     Dates: start: 20130808, end: 20150203
  8. AMLODIPINE [Concomitant]
     Active Substance: AMLODIPINE BESYLATE
     Route: 048
  9. XARELTO [Suspect]
     Active Substance: RIVAROXABAN
     Indication: ATRIAL FIBRILLATION
     Route: 048
     Dates: start: 20130808, end: 20150203
  10. CEREKINON [Concomitant]
     Active Substance: TRIMEBUTINE
     Route: 048
  11. XARELTO [Suspect]
     Active Substance: RIVAROXABAN
     Indication: ATRIAL FIBRILLATION
     Route: 048
     Dates: start: 20120615, end: 20130807

REACTIONS (1)
  - Ischaemic stroke [Recovered/Resolved with Sequelae]

NARRATIVE: CASE EVENT DATE: 20150203
